FAERS Safety Report 6484509-5 (Version None)
Quarter: 2009Q4

REPORT INFORMATION
  Report Type: 
  Country: None (occurrence: None)
  Receive Date: 20091209
  Receipt Date: 20091201
  Transmission Date: 20100525
  Serious: Yes (Life-Threatening, Hospitalization)
  Sender: FDA-Public Use
  Company Number: DE-SANOFI-AVENTIS-F04200900103

PATIENT
  Age: 53 Year
  Sex: Male
  Weight: 110 kg

DRUGS (8)
  1. OXALIPLATIN [Suspect]
     Route: 041
     Dates: start: 20090512, end: 20090512
  2. OXALIPLATIN [Suspect]
     Route: 041
     Dates: start: 20090817, end: 20090817
  3. BEVACIZUMAB [Suspect]
     Route: 041
     Dates: start: 20090512, end: 20090512
  4. BEVACIZUMAB [Suspect]
     Route: 041
     Dates: start: 20090817, end: 20090817
  5. FLUOROURACIL [Suspect]
     Route: 040
     Dates: start: 20090512, end: 20090512
  6. FLUOROURACIL [Suspect]
     Route: 041
     Dates: start: 20090817, end: 20090817
  7. LEUCOVORIN CALCIUM [Suspect]
     Route: 041
     Dates: start: 20090817, end: 20090817
  8. LEUCOVORIN CALCIUM [Suspect]
     Route: 041
     Dates: start: 20090817, end: 20090817

REACTIONS (7)
  - ACUTE RESPIRATORY FAILURE [None]
  - ILEUS [None]
  - INFECTION [None]
  - INTESTINAL PERFORATION [None]
  - PNEUMONIA [None]
  - RENAL FAILURE ACUTE [None]
  - SEPTIC SHOCK [None]
